FAERS Safety Report 4904736-5 (Version None)
Quarter: 2006Q1

REPORT INFORMATION
  Report Type: 
  Country: None (occurrence: None)
  Receive Date: 20060208
  Receipt Date: 20050927
  Transmission Date: 20060701
  Serious: No
  Sender: FDA-Public Use
  Company Number: US-GLAXOSMITHKLINE-A0576090A

PATIENT
  Age: 35 Year
  Sex: Male

DRUGS (4)
  1. PAROXETINE HCL [Suspect]
     Indication: OBSESSIVE-COMPULSIVE DISORDER
     Dosage: 40MG PER DAY
     Route: 048
     Dates: start: 20050701
  2. PAXIL [Suspect]
     Indication: OBSESSIVE-COMPULSIVE DISORDER
     Dosage: 20MG PER DAY
     Route: 048
     Dates: end: 20050701
  3. NEXIUM [Concomitant]
  4. ALLEGRA [Concomitant]

REACTIONS (4)
  - BEDRIDDEN [None]
  - DIZZINESS [None]
  - DRUG INEFFECTIVE [None]
  - FEAR [None]
